FAERS Safety Report 20815536 (Version 1)
Quarter: 2022Q2

REPORT INFORMATION
  Report Type: Spontaneous
  Country: US (occurrence: US)
  Receive Date: 20220511
  Receipt Date: 20220511
  Transmission Date: 20220721
  Serious: Yes (Other)
  Sender: FDA-Public Use
  Company Number: US-AMGEN-USASP2022078113

PATIENT
  Age: 75 Year
  Sex: Male

DRUGS (4)
  1. ENBREL [Suspect]
     Active Substance: ETANERCEPT
     Indication: Rheumatoid arthritis
     Dosage: 50 MILLIGRAM, QWK
     Route: 065
  2. TIKOSYN [Concomitant]
     Active Substance: DOFETILIDE
  3. TORSEMIDE [Concomitant]
     Active Substance: TORSEMIDE
  4. ROSUVASTATIN [Concomitant]
     Active Substance: ROSUVASTATIN
     Indication: Blood cholesterol

REACTIONS (6)
  - Atrial fibrillation [Unknown]
  - Cardiac arrest [Unknown]
  - Myocardial infarction [Unknown]
  - Oedema peripheral [Unknown]
  - Inflammation [Unknown]
  - Blood test abnormal [Unknown]

NARRATIVE: CASE EVENT DATE: 20211201
